FAERS Safety Report 14716919 (Version 1)
Quarter: 2018Q2

REPORT INFORMATION
  Report Type: Spontaneous
  Country: US (occurrence: US)
  Receive Date: 20180404
  Receipt Date: 20180404
  Transmission Date: 20180711
  Serious: No
  Sender: FDA-Public Use
  Company Number: US-BAYER-2018-061818

PATIENT
  Sex: Female

DRUGS (1)
  1. DESONATE [Suspect]
     Active Substance: DESONIDE
     Indication: VITILIGO
     Dosage: UNK

REACTIONS (1)
  - Expired product administered [None]
